FAERS Safety Report 22251334 (Version 2)
Quarter: 2023Q2

REPORT INFORMATION
  Report Type: Spontaneous
  Country: CZ (occurrence: CZ)
  Receive Date: 20230425
  Receipt Date: 20230515
  Transmission Date: 20230722
  Serious: Yes (Other)
  Sender: FDA-Public Use
  Company Number: CZ-GLENMARK PHARMACEUTICALS-2023GMK080764

PATIENT
  Age: 48 Year
  Sex: Female

DRUGS (9)
  1. TOPAMAX [Suspect]
     Active Substance: TOPIRAMATE
     Indication: Migraine prophylaxis
     Dosage: 2 X 25 MG
     Route: 048
     Dates: start: 2016, end: 201602
  2. TOPAMAX [Suspect]
     Active Substance: TOPIRAMATE
     Indication: Migraine with aura
     Route: 048
     Dates: end: 201905
  3. CITALOPRAM [Suspect]
     Active Substance: CITALOPRAM HYDROBROMIDE
     Indication: Depressed mood
     Route: 065
     Dates: end: 2016
  4. METOPROLOL [Suspect]
     Active Substance: METOPROLOL
     Indication: Migraine with aura
     Route: 065
     Dates: start: 201305
  5. DEXAMETHASONE [Concomitant]
     Active Substance: DEXAMETHASONE
     Indication: Migraine
  6. SUMATRIPTAN [Concomitant]
     Active Substance: SUMATRIPTAN
  7. ERGOTAMINE [Concomitant]
     Active Substance: CAFFEINE\ERGOTAMINE\ERGOTAMINE TARTRATE
     Indication: Migraine
  8. NIMESULIDE [Concomitant]
     Active Substance: NIMESULIDE
     Indication: Migraine
  9. DIAZEPAM [Concomitant]
     Active Substance: DIAZEPAM
     Indication: Migraine

REACTIONS (5)
  - Mental impairment [Unknown]
  - Medication error [Unknown]
  - Sedation [Recovered/Resolved]
  - Confusional state [Recovered/Resolved]
  - Drug ineffective [Unknown]

NARRATIVE: CASE EVENT DATE: 20160101
